FAERS Safety Report 12110547 (Version 1)
Quarter: 2016Q1

REPORT INFORMATION
  Report Type: Spontaneous
  Country: US (occurrence: US)
  Receive Date: 20160224
  Receipt Date: 20160224
  Transmission Date: 20160526
  Serious: No
  Sender: FDA-Public Use
  Company Number: US-ELI_LILLY_AND_COMPANY-US201601009462

PATIENT
  Age: 78 Year
  Sex: Male

DRUGS (5)
  1. HUMALOG [Suspect]
     Active Substance: INSULIN LISPRO
     Indication: TYPE 2 DIABETES MELLITUS
     Dosage: UNK UNK, TID
     Route: 065
     Dates: start: 20160102
  2. FISH OIL [Concomitant]
     Active Substance: FISH OIL
  3. FOLIC ACID. [Concomitant]
     Active Substance: FOLIC ACID
  4. BABY ASPIRIN [Concomitant]
     Active Substance: ASPIRIN
  5. LIPITOR [Concomitant]
     Active Substance: ATORVASTATIN CALCIUM

REACTIONS (2)
  - Incorrect dose administered [Unknown]
  - Blood glucose increased [Unknown]

NARRATIVE: CASE EVENT DATE: 20160102
